FAERS Safety Report 5332053-0 (Version None)
Quarter: 2007Q2

REPORT INFORMATION
  Report Type: 
  Country: None (occurrence: None)
  Receive Date: 20070306
  Receipt Date: 20051227
  Transmission Date: 20071010
  Serious: Yes (Hospitalization)
  Sender: FDA-Public Use
  Company Number: A03200504436

PATIENT
  Age: 64 Year
  Sex: Male
  Weight: 92.97 kg

DRUGS (4)
  1. PLAVIX [Suspect]
     Indication: PERIPHERAL VASCULAR DISORDER
     Dosage: 75 MG QD - ORAL
     Route: 048
     Dates: start: 20040101
  2. LOVASTATIN [Concomitant]
  3. FOSINOPRIL SODIUM [Concomitant]
  4. HYDROCHLOROTHIAZIDE [Concomitant]

REACTIONS (2)
  - ANAEMIA [None]
  - FATIGUE [None]
